FAERS Safety Report 8422542 (Version 2)
Quarter: 2013Q1

REPORT INFORMATION
  Report Type: Spontaneous
  Country: GB (occurrence: GB)
  Receive Date: 20120223
  Receipt Date: 20130108
  Transmission Date: 20140127
  Serious: Yes (Other)
  Sender: FDA-Public Use
  Company Number: GB-ROCHE-1040174

PATIENT
  Age: 52 Year
  Sex: Female
  Weight: 59 kg

DRUGS (4)
  1. RITUXIMAB [Suspect]
     Indication: RHEUMATOID ARTHRITIS
     Route: 042
     Dates: start: 20111202, end: 20111216
  2. AMITRIPTYLINE [Concomitant]
     Route: 048
     Dates: start: 20060421, end: 20110906
  3. FOLIC ACID [Concomitant]
     Route: 048
     Dates: start: 20050202, end: 20120121
  4. METHOTREXATE [Concomitant]
     Route: 048
     Dates: start: 20050202, end: 20120120

REACTIONS (4)
  - Liver function test abnormal [Recovered/Resolved]
  - Alanine aminotransferase increased [Recovered/Resolved]
  - Gamma-glutamyltransferase increased [Recovered/Resolved]
  - Aspartate aminotransferase increased [Unknown]
